FAERS Safety Report 5643383-7 (Version None)
Quarter: 2008Q1

REPORT INFORMATION
  Report Type: 
  Country: None (occurrence: None)
  Receive Date: 20080131
  Receipt Date: 20071030
  Transmission Date: 20080703
  Serious: Yes (Other)
  Sender: FDA-Public Use
  Company Number: 163-21880-07100459

PATIENT
  Age: 60 Year
  Sex: Male
  Weight: 92.0802 kg

DRUGS (11)
  1. REVLIMID [Suspect]
     Indication: MULTIPLE MYELOMA
     Dosage: 15 MG, QD X 21 DAYS Q28D, ORAL
     Route: 048
     Dates: start: 20070921
  2. REVLIMID [Suspect]
     Dosage: SEE IMAGE
     Route: 048
     Dates: start: 20070806
  3. REVLIMID [Suspect]
     Dosage: SEE IMAGE
     Route: 048
     Dates: start: 20070921
  4. REVLIMID [Suspect]
     Dosage: SEE IMAGE
     Route: 048
     Dates: start: 20071030
  5. ATENOLOL [Concomitant]
  6. HYDROCHLOROTHIAZIDE [Concomitant]
  7. SIMVASTATIN [Concomitant]
  8. GLIPIZIDE [Concomitant]
  9. CYANOCOBALAMIN [Concomitant]
  10. K-TAB [Concomitant]
  11. LEVITRA [Concomitant]

REACTIONS (3)
  - HAEMOGLOBIN DECREASED [None]
  - NEUTROPENIA [None]
  - THROMBOCYTOPENIA [None]
